FAERS Safety Report 19601677 (Version 3)
Quarter: 2022Q3

REPORT INFORMATION
  Report Type: Report from Study
  Country: CA (occurrence: CA)
  Receive Date: 20210722
  Receipt Date: 20220725
  Transmission Date: 20221026
  Serious: Yes (Hospitalization)
  Sender: FDA-Public Use
  Company Number: CA-ABBVIE-21K-028-4002953-00

PATIENT
  Sex: Male

DRUGS (1)
  1. SKYRIZI [Suspect]
     Active Substance: RISANKIZUMAB-RZAA
     Indication: Psoriasis
     Route: 058
     Dates: start: 20210616, end: 20220317

REACTIONS (8)
  - Cerebrovascular accident [Recovering/Resolving]
  - Speech disorder [Not Recovered/Not Resolved]
  - Skin plaque [Not Recovered/Not Resolved]
  - Peripheral swelling [Not Recovered/Not Resolved]
  - Bone deformity [Not Recovered/Not Resolved]
  - Skin disorder [Not Recovered/Not Resolved]
  - Limb injury [Not Recovered/Not Resolved]
  - Bacterial infection [Unknown]

NARRATIVE: CASE EVENT DATE: 20210101
